FAERS Safety Report 5875550-1 (Version None)
Quarter: 2008Q3

REPORT INFORMATION
  Report Type: 
  Country: None (occurrence: None)
  Receive Date: 20080909
  Receipt Date: 20080901
  Transmission Date: 20090109
  Serious: Yes (Life-Threatening)
  Sender: FDA-Public Use
  Company Number: IT-SANOFI-SYNTHELABO-A06200800523

PATIENT
  Sex: Male

DRUGS (1)
  1. OXALIPLATINO [Suspect]
     Indication: DRUG USE FOR UNKNOWN INDICATION
     Dosage: UNK
     Route: 041

REACTIONS (4)
  - CYANOSIS [None]
  - LARYNGEAL OEDEMA [None]
  - LARYNGOSPASM [None]
  - LOSS OF CONSCIOUSNESS [None]
